FAERS Safety Report 5657381-0 (Version None)
Quarter: 2008Q1

REPORT INFORMATION
  Report Type: 
  Country: None (occurrence: None)
  Receive Date: 20080310
  Receipt Date: 20080303
  Transmission Date: 20080703
  Serious: Yes (Hospitalization)
  Sender: FDA-Public Use
  Company Number: PHHY2008JP02610

PATIENT
  Age: 27 Year
  Sex: Female

DRUGS (4)
  1. DEPAKENE [Concomitant]
     Indication: PARTIAL SEIZURES
     Dosage: 200 MG
     Route: 048
     Dates: end: 20080226
  2. DEPAKENE [Concomitant]
     Dosage: 200 MG/ DAY
     Route: 048
     Dates: start: 20080301
  3. NITRAZEPAM [Concomitant]
     Dosage: 2.5 MG/ DAY
     Route: 048
  4. TEGRETOL [Suspect]
     Indication: PARTIAL SEIZURES
     Dosage: 800 MG/ DAY
     Dates: start: 20080226, end: 20080228

REACTIONS (4)
  - DIZZINESS [None]
  - FEELING DRUNK [None]
  - NAUSEA [None]
  - ORAL INTAKE REDUCED [None]
